FAERS Safety Report 7287732-5 (Version None)
Quarter: 2011Q1

REPORT INFORMATION
  Report Type: 
  Country: None (occurrence: None)
  Receive Date: 20110211
  Receipt Date: 20110201
  Transmission Date: 20110831
  Serious: Yes (Life-Threatening, Hospitalization)
  Sender: FDA-Public Use
  Company Number: FR-SANOFI-AVENTIS-2011SA006555

PATIENT
  Sex: Female

DRUGS (2)
  1. MULTAQ [Suspect]
     Route: 048
     Dates: end: 20110127
  2. CORDARONE [Concomitant]
     Route: 048

REACTIONS (2)
  - DRUG INTOLERANCE [None]
  - ATRIAL FIBRILLATION [None]
